FAERS Safety Report 23660464 (Version 1)
Quarter: 2024Q1

REPORT INFORMATION
  Report Type: Spontaneous
  Country: US (occurrence: US)
  Receive Date: 20240322
  Receipt Date: 20240322
  Transmission Date: 20240410
  Serious: No
  Sender: FDA-Public Use
  Company Number: US-GLENMARK PHARMACEUTICALS-2024GMK089062

PATIENT

DRUGS (1)
  1. CICLOPIROX [Suspect]
     Active Substance: CICLOPIROX\TOCOPHEROL
     Indication: Rash
     Dosage: UNK
     Route: 065

REACTIONS (3)
  - Skin discolouration [Unknown]
  - Drug effective for unapproved indication [Unknown]
  - Pruritus [Unknown]
